FAERS Safety Report 5973515-2 (Version None)
Quarter: 2008Q4

REPORT INFORMATION
  Report Type: 
  Country: None (occurrence: None)
  Receive Date: 20081201
  Receipt Date: 20081120
  Transmission Date: 20090506
  Serious: Yes (Hospitalization)
  Sender: FDA-Public Use
  Company Number: PHHO2008NZ05947

PATIENT
  Sex: Female
  Weight: 54.5 kg

DRUGS (3)
  1. LDT600 LDT+TAB [Suspect]
     Indication: HEPATITIS B
     Dosage: DOUBLE BLIND
     Route: 048
     Dates: start: 20060320, end: 20080530
  2. NICORETTE [Suspect]
  3. IBUPROFEN TABLETS [Concomitant]

REACTIONS (7)
  - DYSPNOEA [None]
  - MALAISE [None]
  - MUSCULAR WEAKNESS [None]
  - MYOPATHY [None]
  - NEUROPATHY PERIPHERAL [None]
  - PNEUMONIA [None]
  - PYREXIA [None]
